FAERS Safety Report 16533880 (Version 1)
Quarter: 2019Q3

REPORT INFORMATION
  Report Type: Spontaneous
  Country: JP (occurrence: JP)
  Receive Date: 20190705
  Receipt Date: 20190705
  Transmission Date: 20191004
  Serious: Yes (Other)
  Sender: FDA-Public Use
  Company Number: JP-TOLMAR, INC.-TOLG20192302

PATIENT
  Age: 68 Year
  Sex: Male

DRUGS (4)
  1. METRONIDAZOLE. [Suspect]
     Active Substance: METRONIDAZOLE
     Indication: OSTEOMYELITIS
     Dosage: 1.5 G
     Route: 048
  2. METRONIDAZOLE. [Suspect]
     Active Substance: METRONIDAZOLE
     Dosage: 1.5 G
     Route: 042
  3. HYPERBARIC OXYGEN [Suspect]
     Active Substance: OXYGEN
     Indication: OSTEOMYELITIS
     Dosage: 2.0 ATA, 60 MINUTES.
     Route: 065
  4. PAZUFLOXACIN [Concomitant]
     Active Substance: PAZUFLOXACIN
     Indication: OSTEOMYELITIS
     Dosage: 2 G
     Route: 042

REACTIONS (6)
  - Gait disturbance [Recovering/Resolving]
  - Speech disorder [Recovering/Resolving]
  - Deafness [Recovering/Resolving]
  - Toxic encephalopathy [Recovering/Resolving]
  - Neuropathy peripheral [Recovering/Resolving]
  - Nausea [Recovering/Resolving]
